FAERS Safety Report 6631419-6 (Version None)
Quarter: 2010Q1

REPORT INFORMATION
  Report Type: 
  Country: None (occurrence: None)
  Receive Date: 20100311
  Receipt Date: 20100311
  Transmission Date: 20100710
  Serious: Yes (Hospitalization)
  Sender: FDA-Public Use
  Company Number: None

PATIENT
  Age: 52 Year
  Sex: Female
  Weight: 107.5025 kg

DRUGS (1)
  1. PIOGLITAZONE [Suspect]
     Indication: PANCREATITIS CHRONIC
     Dosage: 30 1 PO
     Route: 048
     Dates: start: 20100211, end: 20100310

REACTIONS (4)
  - CONDITION AGGRAVATED [None]
  - NEPHROLITHIASIS [None]
  - ORTHOSTATIC HYPOTENSION [None]
  - VERTIGO [None]
